FAERS Safety Report 4410142-2 (Version None)
Quarter: 2004Q2

REPORT INFORMATION
  Report Type: 
  Country: None (occurrence: None)
  Receive Date: 20040618
  Receipt Date: 20040324
  Transmission Date: 20050107
  Serious: No
  Sender: FDA-Public Use
  Company Number: US-JNJFOC-20040306100

PATIENT
  Age: 44 Year
  Sex: Female
  Weight: 73.0291 kg

DRUGS (8)
  1. ORTHO EVRA [Suspect]
     Indication: CONTRACEPTION
     Dosage: 1 DOSE(S), 3 IN 4 WEEK, TRANSDERMAL
     Route: 062
     Dates: start: 20040212
  2. SYNTHROID [Concomitant]
  3. LEXAPRO [Concomitant]
  4. SINGULAIR [Concomitant]
  5. ACIPHEX [Concomitant]
  6. ZYRTEC [Concomitant]
  7. AMBIEN [Concomitant]
  8. FLONASE (FLUTICASONE PROPIONATE) SPRAY [Concomitant]

REACTIONS (3)
  - BREAST DISORDER [None]
  - HYPERHIDROSIS [None]
  - METRORRHAGIA [None]
